FAERS Safety Report 4756574-4 (Version None)
Quarter: 2005Q3

REPORT INFORMATION
  Report Type: 
  Country: None (occurrence: None)
  Receive Date: 20050823
  Receipt Date: 20050708
  Transmission Date: 20060218
  Serious: No
  Sender: FDA-Public Use
  Company Number: 215199

PATIENT

DRUGS (2)
  1. RAPTIVA [Suspect]
  2. QUININE SULFATE [Concomitant]

REACTIONS (1)
  - THROMBOCYTOPENIA [None]
